FAERS Safety Report 16757199 (Version 1)
Quarter: 2019Q3

REPORT INFORMATION
  Report Type: Report from Study
  Country: ES (occurrence: ES)
  Receive Date: 20190829
  Receipt Date: 20190829
  Transmission Date: 20191005
  Serious: Yes (Life-Threatening, Hospitalization)
  Sender: FDA-Public Use
  Company Number: ES-TEVA-2019-ES-1098471

PATIENT
  Age: 72 Year
  Sex: Male

DRUGS (4)
  1. DICLOFENACO (745A) [Suspect]
     Active Substance: DICLOFENAC
     Indication: PAIN
     Route: 048
     Dates: start: 20180531, end: 20180616
  2. GEMFIBROZILO (637A) [Concomitant]
     Indication: DYSLIPIDAEMIA
     Route: 048
     Dates: start: 20141103, end: 20180616
  3. DEPRAX 100 MG COMPRIMIDOS RECUBIERTOS CON PELICULA EFG , 30 COMPRIMIDO [Concomitant]
     Active Substance: TRAZODONE HYDROCHLORIDE
     Indication: DEPRESSION
     Route: 048
     Dates: start: 20120424
  4. DECAPEPTYL SEMESTRAL 22,5 MG POLVO Y DISOLVENTE PARA SUSPENSI?N DE LIB [Concomitant]
     Indication: NEOPLASM PROSTATE
     Route: 030
     Dates: end: 20180616

REACTIONS (1)
  - Lower gastrointestinal haemorrhage [Recovered/Resolved]

NARRATIVE: CASE EVENT DATE: 20180615
